FAERS Safety Report 18346107 (Version 1)
Quarter: 2020Q4

REPORT INFORMATION
  Report Type: Spontaneous
  Country: US (occurrence: US)
  Receive Date: 20201005
  Receipt Date: 20201005
  Transmission Date: 20210114
  Serious: No
  Sender: FDA-Public Use
  Company Number: US-JAZZ-2020-US-008072

PATIENT
  Sex: Male

DRUGS (3)
  1. XYREM [Concomitant]
     Active Substance: SODIUM OXYBATE
     Dosage: UNK
     Dates: start: 20200529
  2. SUNOSI [Suspect]
     Active Substance: SOLRIAMFETOL
     Indication: PRODUCT USED FOR UNKNOWN INDICATION
     Dosage: 75 MILLIGRAM
     Route: 048
  3. SUNOSI [Suspect]
     Active Substance: SOLRIAMFETOL
     Dosage: 150 MILLIGRAM
     Route: 048

REACTIONS (1)
  - Headache [Unknown]
